FAERS Safety Report 18752500 (Version 1)
Quarter: 2021Q1

REPORT INFORMATION
  Report Type: Report from Study
  Country: CO (occurrence: CO)
  Receive Date: 20210118
  Receipt Date: 20210118
  Transmission Date: 20210419
  Serious: Yes (Death, Hospitalization, Other)
  Sender: FDA-Public Use
  Company Number: CO-009507513-2011COL006240

PATIENT
  Age: 83 Year
  Sex: Female
  Weight: 57 kg

DRUGS (1)
  1. PEMBROLIZUMAB. [Suspect]
     Active Substance: PEMBROLIZUMAB
     Indication: LUNG NEOPLASM MALIGNANT
     Dosage: 200 MILLIGRAM, Q3W
     Route: 042
     Dates: start: 20201019, end: 20201215

REACTIONS (21)
  - Ill-defined disorder [Fatal]
  - Generalised oedema [Recovered/Resolved]
  - Haemoptysis [Not Recovered/Not Resolved]
  - Decreased appetite [Recovering/Resolving]
  - Malignant neoplasm progression [Fatal]
  - Asphyxia [Recovered/Resolved]
  - Sputum increased [Unknown]
  - Dyspnoea [Recovered/Resolved]
  - Choking sensation [Not Recovered/Not Resolved]
  - Cough [Not Recovered/Not Resolved]
  - Incision site pain [Recovering/Resolving]
  - Nausea [Not Recovered/Not Resolved]
  - Urinary retention [Unknown]
  - Peripheral swelling [Not Recovered/Not Resolved]
  - Salivary hypersecretion [Not Recovered/Not Resolved]
  - Insomnia [Unknown]
  - Venous thrombosis limb [Not Recovered/Not Resolved]
  - Pleural effusion [Recovering/Resolving]
  - Secretion discharge [Not Recovered/Not Resolved]
  - Pleural effusion [Recovering/Resolving]
  - Vomiting [Not Recovered/Not Resolved]

NARRATIVE: CASE EVENT DATE: 2020
